FAERS Safety Report 5105339-2 (Version None)
Quarter: 2006Q3

REPORT INFORMATION
  Report Type: 
  Country: None (occurrence: None)
  Receive Date: 20060731
  Receipt Date: 20060607
  Transmission Date: 20061208
  Serious: Yes (Hospitalization)
  Sender: FDA-Public Use
  Company Number: US-JNJFOC-20050403192

PATIENT
  Age: 77 Year
  Sex: Female

DRUGS (3)
  1. RISPERDAL [Suspect]
     Indication: BIPOLAR DISORDER
     Dosage: SEE IMAGE
     Route: 048
  2. RISPERDAL [Suspect]
     Indication: MANIA
     Dosage: SEE IMAGE
     Route: 048
  3. MOOD STABILIZER (ALL OTHER THERAPEUTIC PRODUCTS) [Concomitant]

REACTIONS (5)
  - HYPOTENSION [None]
  - MANIA [None]
  - NAUSEA [None]
  - SYNCOPE [None]
  - VOMITING [None]
